FAERS Safety Report 21689524 (Version 3)
Quarter: 2024Q2

REPORT INFORMATION
  Report Type: Report from Study
  Country: US (occurrence: US)
  Receive Date: 20221206
  Receipt Date: 20240408
  Transmission Date: 20240715
  Serious: No
  Sender: FDA-Public Use
  Company Number: US-ABBVIE-4189731

PATIENT
  Sex: Male
  Weight: 100 kg

DRUGS (3)
  1. HUMIRA [Suspect]
     Active Substance: ADALIMUMAB
     Indication: Uveitis
     Dosage: START DATE: 4.5 YEARS AGO, FORM STRENGTH 40 MILLIGRAMS, CITRATE FREE
     Route: 058
     Dates: start: 2018
  2. HUMIRA [Suspect]
     Active Substance: ADALIMUMAB
     Indication: Ankylosing spondylitis
  3. DICLOFENAC SODIUM [Concomitant]
     Active Substance: DICLOFENAC\DICLOFENAC SODIUM
     Indication: Arthritis

REACTIONS (8)
  - Blood cholesterol abnormal [Unknown]
  - Inflammation [Recovering/Resolving]
  - Unevaluable event [Recovering/Resolving]
  - Uveitis [Unknown]
  - Erythema [Recovering/Resolving]
  - Blood pressure abnormal [Unknown]
  - Dyspepsia [Unknown]
  - Pain [Unknown]

NARRATIVE: CASE EVENT DATE: 20210101
